FAERS Safety Report 24787194 (Version 1)
Quarter: 2024Q4

REPORT INFORMATION
  Report Type: Spontaneous
  Country: CZ (occurrence: CZ)
  Receive Date: 20241230
  Receipt Date: 20241230
  Transmission Date: 20250114
  Serious: Yes (Hospitalization, Other)
  Sender: ROCHE
  Company Number: None

PATIENT
  Age: 47 Year
  Sex: Female
  Weight: 58 kg

DRUGS (7)
  1. PHESGO [Suspect]
     Active Substance: HYALURONIDASE-ZZXF\PERTUZUMAB\TRASTUZUMAB
     Indication: Breast cancer
     Dosage: INITIAL (INITIAL 1200 MG/600 MG, CONTINUATION 600 MG/600 MG) D1+ CARBOPLATIN 325 MG D1 + 8 AND PAKLI
     Route: 050
     Dates: start: 20240912, end: 20241115
  2. CARBOPLATIN [Concomitant]
     Active Substance: CARBOPLATIN
     Dosage: ADMINISTERED ON THE FIRST AND ON THE EIGHT DAY OF EACH CYCLE OF BIOCHEMOTHERAPY, 4 CYCLES IN TOTAL,
     Dates: start: 20240912
  3. BISOPROLOL [Concomitant]
     Active Substance: BISOPROLOL
     Dosage: 1-0-0
  4. MAGNESIUM CARBONATE\MAGNESIUM OXIDE [Concomitant]
     Active Substance: MAGNESIUM CARBONATE\MAGNESIUM OXIDE
     Dosage: 1-0-1
  5. POTASSIUM CHLORIDE [Concomitant]
     Active Substance: POTASSIUM CHLORIDE
     Dosage: DOSAGE: 1-1-1
     Route: 050
  6. PACLITAXEL [Concomitant]
     Active Substance: PACLITAXEL
     Dosage: ADMINISTERED ON THE FIRST AND ON THE EIGHT DAY OF EACH CYCLE OF BIOCHEMOTHERAPY, 4 CYCLES IN TOTAL,
     Dates: start: 20240912
  7. AMICLOTON [Concomitant]
     Dosage: 1-0-0

REACTIONS (3)
  - Normochromic normocytic anaemia [Unknown]
  - Transaminases increased [Unknown]
  - Diarrhoea [Recovering/Resolving]

NARRATIVE: CASE EVENT DATE: 20241206
